FAERS Safety Report 6368334-1 (Version None)
Quarter: 2009Q3

REPORT INFORMATION
  Report Type: 
  Country: None (occurrence: None)
  Receive Date: 20090909
  Receipt Date: 20090604
  Transmission Date: 20100115
  Serious: No
  Sender: FDA-Public Use
  Company Number: 000993

PATIENT
  Sex: Female
  Weight: 56.6996 kg

DRUGS (3)
  1. ROTIGOTINE [Suspect]
     Indication: RESTLESS LEGS SYNDROME
     Dosage: (4 MG QD TRANSDERMAL)
     Route: 062
     Dates: start: 20080201
  2. SINEMET [Concomitant]
  3. TYLENOL W/ CODEINE NO. 3 [Concomitant]

REACTIONS (2)
  - EXPIRED DRUG ADMINISTERED [None]
  - MEDICATION ERROR [None]
